FAERS Safety Report 4309509-2 (Version None)
Quarter: 2004Q1

REPORT INFORMATION
  Report Type: 
  Country: None (occurrence: None)
  Receive Date: 20040301
  Receipt Date: 20040223
  Transmission Date: 20041129
  Serious: No
  Sender: FDA-Public Use
  Company Number: 2004UW03183

PATIENT
  Age: 59 Year
  Sex: Male

DRUGS (5)
  1. CRESTOR [Suspect]
  2. LIPITOR [Suspect]
  3. ALTACE [Concomitant]
  4. GLYCERYL TRINITRATE [Concomitant]
  5. ACETYLSALICYLIC ACID [Concomitant]

REACTIONS (1)
  - MYOCARDIAL INFARCTION [None]
